FAERS Safety Report 6838823-1 (Version None)
Quarter: 2010Q3

REPORT INFORMATION
  Report Type: 
  Country: None (occurrence: None)
  Receive Date: 20100709
  Receipt Date: 20100621
  Transmission Date: 20110219
  Serious: Yes (Other)
  Sender: FDA-Public Use
  Company Number: DE-ACCORD-005615

PATIENT

DRUGS (1)
  1. FINASTERIDE [Suspect]

REACTIONS (1)
  - LARYNGEAL CANCER [None]
